FAERS Safety Report 7644095-0 (Version None)
Quarter: 2011Q3

REPORT INFORMATION
  Report Type: 
  Country: None (occurrence: None)
  Receive Date: 20110729
  Receipt Date: 20110720
  Transmission Date: 20111222
  Serious: Yes (Death)
  Sender: FDA-Public Use
  Company Number: US-BRACCO-004727

PATIENT
  Sex: Male

DRUGS (17)
  1. OMNISCAN [Suspect]
     Dates: start: 20050113
  2. NEPHROCAPS [Concomitant]
  3. RENAGEL [Concomitant]
  4. PROHANCE [Suspect]
     Indication: NUCLEAR MAGNETIC RESONANCE IMAGING
     Dates: start: 20040330, end: 20040330
  5. OMNISCAN [Suspect]
     Indication: NUCLEAR MAGNETIC RESONANCE IMAGING
     Dates: start: 20050204
  6. ANALGESICS [Concomitant]
  7. MAGNEVIST [Suspect]
     Indication: ANGIOGRAM
     Dates: start: 20030909
  8. ASPIRIN [Concomitant]
     Dosage: } 100 MG
  9. SYNTHROID [Concomitant]
  10. OMNISCAN [Suspect]
     Indication: ANGIOGRAM
     Dates: start: 20040330
  11. ATENOLOL [Concomitant]
  12. PLAVIX [Concomitant]
  13. AVANDIA [Concomitant]
  14. COUMADIN [Concomitant]
  15. MAGNEVIST [Suspect]
     Indication: NUCLEAR MAGNETIC RESONANCE IMAGING
  16. LISINOPRIL [Concomitant]
  17. PROHANCE [Suspect]
     Indication: ANGIOGRAM
     Dates: start: 20040330, end: 20040330

REACTIONS (14)
  - NEPHROGENIC SYSTEMIC FIBROSIS [None]
  - ANXIETY [None]
  - ARRHYTHMIA [None]
  - DEPRESSION [None]
  - PINGUECULA [None]
  - CONJUNCTIVAL HYPERAEMIA [None]
  - FOOT AMPUTATION [None]
  - CARDIO-RESPIRATORY ARREST [None]
  - HYPOXIC-ISCHAEMIC ENCEPHALOPATHY [None]
  - HYPERTENSION [None]
  - DRY GANGRENE [None]
  - DIABETES MELLITUS [None]
  - OSTEOMYELITIS [None]
  - CARDIOGENIC SHOCK [None]
